FAERS Safety Report 22361872 (Version 2)
Quarter: 2023Q2

REPORT INFORMATION
  Report Type: Spontaneous
  Country: US (occurrence: US)
  Receive Date: 20230524
  Receipt Date: 20230626
  Transmission Date: 20230721
  Serious: No
  Sender: FDA-Public Use
  Company Number: US-BRISTOL-MYERS SQUIBB COMPANY-2023-073309

PATIENT
  Age: 67 Year
  Sex: Male
  Weight: 73.48 kg

DRUGS (1)
  1. POMALYST [Suspect]
     Active Substance: POMALIDOMIDE
     Indication: Plasma cell myeloma
     Dosage: FREQ -DAILY FOR 21 DAYS/FREQUENCY: 3 WEEKS ON AND 1 WEEK OFF
     Route: 048
     Dates: start: 20230501

REACTIONS (3)
  - Pruritus [Unknown]
  - Chronic obstructive pulmonary disease [Recovering/Resolving]
  - Extra dose administered [Unknown]
